FAERS Safety Report 9068452 (Version 1)
Quarter: 2013Q1

REPORT INFORMATION
  Report Type: Spontaneous
  Country: US (occurrence: US)
  Receive Date: 20130128
  Receipt Date: 20130128
  Transmission Date: 20140127
  Serious: Yes (Death)
  Sender: FDA-Public Use
  Company Number: PHHY2013US006687

PATIENT
  Age: 65 Year
  Sex: Male

DRUGS (7)
  1. METOPROLOL [Suspect]
     Dosage: UNK UKN, UNK
  2. ACETAMINOPHEN (PARACETAMOL), CODEINE PHOSPHATE [Suspect]
     Dosage: UNK UKN, UNK
  3. GABAPENTIN [Suspect]
     Dosage: UNK UKN, UNK
  4. QUETIAPINE [Suspect]
     Dosage: UNK UKN, UNK
  5. ESCITALOPRAM [Suspect]
     Dosage: UNK UKN, UNK
  6. SIMVASTATIN [Suspect]
     Dosage: UNK UKN, UNK
  7. ESZOPICLONE [Suspect]
     Dosage: UNK UKN, UNK

REACTIONS (1)
  - Completed suicide [Fatal]
